APPROVED DRUG PRODUCT: ONFI
Active Ingredient: CLOBAZAM
Strength: 20MG
Dosage Form/Route: TABLET;ORAL
Application: N202067 | Product #003 | TE Code: AB
Applicant: LUNDBECK PHARMACEUTICALS LLC
Approved: Oct 21, 2011 | RLD: Yes | RS: Yes | Type: RX